FAERS Safety Report 17914453 (Version 2)
Quarter: 2020Q3

REPORT INFORMATION
  Report Type: Spontaneous
  Country: US (occurrence: US)
  Receive Date: 20200618
  Receipt Date: 20200917
  Transmission Date: 20201103
  Serious: No
  Sender: FDA-Public Use
  Company Number: US-ADAMAS PHARMA, LLC-2020ADA01108

PATIENT
  Sex: Male

DRUGS (2)
  1. GOCOVRI [Suspect]
     Active Substance: AMANTADINE
     Indication: TARDIVE DYSKINESIA
     Dosage: UNK
     Dates: start: 201510
  2. GOCOVRI [Suspect]
     Active Substance: AMANTADINE
     Indication: PARKINSON^S DISEASE

REACTIONS (7)
  - Anxiety [Not Recovered/Not Resolved]
  - Depression [Not Recovered/Not Resolved]
  - Fear [Not Recovered/Not Resolved]
  - Back disorder [Not Recovered/Not Resolved]
  - Condition aggravated [Not Recovered/Not Resolved]
  - Fall [Not Recovered/Not Resolved]
  - Freezing phenomenon [Not Recovered/Not Resolved]
